FAERS Safety Report 16988666 (Version 1)
Quarter: 2019Q4

REPORT INFORMATION
  Report Type: Spontaneous
  Country: US (occurrence: US)
  Receive Date: 20191104
  Receipt Date: 20191104
  Transmission Date: 20200122
  Serious: No
  Sender: FDA-Public Use
  Company Number: US-ZYDUS-033709

PATIENT
  Age: 62 Year
  Sex: Female

DRUGS (2)
  1. LEVOFLOXACIN. [Suspect]
     Active Substance: LEVOFLOXACIN
     Indication: INFECTION
     Route: 048
     Dates: start: 20181202, end: 201901
  2. RIFAMPICIN [Concomitant]
     Active Substance: RIFAMPIN
     Indication: INFECTION
     Route: 065
     Dates: start: 20181202, end: 201901

REACTIONS (2)
  - Musculoskeletal pain [Not Recovered/Not Resolved]
  - Joint noise [Not Recovered/Not Resolved]

NARRATIVE: CASE EVENT DATE: 20181205
